FAERS Safety Report 13089605 (Version 1)
Quarter: 2017Q1

REPORT INFORMATION
  Report Type: Spontaneous
  Country: PR (occurrence: PR)
  Receive Date: 20170105
  Receipt Date: 20170105
  Transmission Date: 20170428
  Serious: Yes (Hospitalization)
  Sender: FDA-Public Use
  Company Number: PR-PFIZER INC-2017002926

PATIENT
  Age: 9 Year
  Sex: Female
  Weight: 23 kg

DRUGS (2)
  1. FLOVENT [Concomitant]
     Active Substance: FLUTICASONE PROPIONATE
     Indication: COUGH
     Dosage: 2 PUFFS TWICE DAILY
     Dates: start: 20161224
  2. GENOTROPIN [Suspect]
     Active Substance: SOMATROPIN
     Indication: HYPOTHALAMO-PITUITARY DISORDER
     Dosage: 0.8MG, DAILY
     Route: 058
     Dates: start: 20161209

REACTIONS (3)
  - Influenza [Recovered/Resolved]
  - Incorrect product storage [Unknown]
  - Product use issue [Unknown]

NARRATIVE: CASE EVENT DATE: 20161216
